FAERS Safety Report 6614573-1 (Version None)
Quarter: 2010Q1

REPORT INFORMATION
  Report Type: 
  Country: None (occurrence: None)
  Receive Date: 20100304
  Receipt Date: 20100304
  Transmission Date: 20100710
  Serious: Yes (Disabling)
  Sender: FDA-Public Use
  Company Number: None

PATIENT
  Sex: Male
  Weight: 112.0385 kg

DRUGS (1)
  1. REGADENOSON 0.4MG ASTELLAS PHARMA US [Suspect]
     Indication: DIAGNOSTIC PROCEDURE
     Dosage: 0.4MG ONE TIME DOSE IV BOLUS
     Route: 040
     Dates: start: 20100303, end: 20100303

REACTIONS (2)
  - BRADYCARDIA [None]
  - IMMEDIATE POST-INJECTION REACTION [None]
